FAERS Safety Report 7586332-7 (Version None)
Quarter: 2011Q2

REPORT INFORMATION
  Report Type: 
  Country: None (occurrence: None)
  Receive Date: 20110630
  Receipt Date: 20110630
  Transmission Date: 20111010
  Serious: Yes (Hospitalization)
  Sender: FDA-Public Use
  Company Number: None

PATIENT
  Age: 50 Year
  Sex: Female
  Weight: 62.3 kg

DRUGS (17)
  1. MAGNESIUM OXIDE [Concomitant]
  2. NICOTINE TRANSDERMAL PATCHES [Concomitant]
  3. KLONOPIN [Concomitant]
  4. VOLTAREN [Concomitant]
  5. AVASTATIN 2X400MG AND 2X100MG (NDC#50242-0060-01 (100MG) GENENTECH [Suspect]
     Indication: NON-SMALL CELL LUNG CANCER
  6. LIDODERM [Concomitant]
  7. DUONEB [Concomitant]
  8. OXYCODONE HCL [Concomitant]
  9. LEXAPRO [Concomitant]
  10. CELEBREX [Concomitant]
  11. VITAMIN B-12 [Concomitant]
  12. LORATADINE [Concomitant]
  13. ANNUSOL SUPPOSITORY [Concomitant]
  14. TESSALON [Concomitant]
  15. COMBIVENT [Concomitant]
  16. DICYCLOMINE [Concomitant]
  17. FOLATE [Concomitant]

REACTIONS (2)
  - DEEP VEIN THROMBOSIS [None]
  - PULMONARY EMBOLISM [None]
